FAERS Safety Report 7027224-1 (Version None)
Quarter: 2010Q4

REPORT INFORMATION
  Report Type: 
  Country: None (occurrence: None)
  Receive Date: 20101001
  Receipt Date: 20101001
  Transmission Date: 20110411
  Serious: Yes (Other)
  Sender: FDA-Public Use
  Company Number: None

PATIENT
  Age: 30 Year
  Sex: Female
  Weight: 49.8957 kg

DRUGS (2)
  1. LEVAQUIN [Suspect]
     Indication: URINARY TRACT INFECTION
     Dosage: ONE TABLET DAILY PO
     Route: 048
     Dates: start: 20100922, end: 20100924
  2. LEVAQUIN [Suspect]
     Indication: URINARY TRACT INFECTION
     Dosage: ONE TABLET DAILY PO
     Route: 048
     Dates: start: 20100923, end: 20100924

REACTIONS (3)
  - ARTHRALGIA [None]
  - OEDEMA PERIPHERAL [None]
  - PAIN IN EXTREMITY [None]
